FAERS Safety Report 21976702 (Version 1)
Quarter: 2023Q1

REPORT INFORMATION
  Report Type: Spontaneous
  Country: DE (occurrence: DE)
  Receive Date: 20230210
  Receipt Date: 20230210
  Transmission Date: 20230417
  Serious: No
  Sender: FDA-Public Use
  Company Number: None

PATIENT
  Age: 65 Year
  Sex: Female
  Weight: 79.3 kg

DRUGS (2)
  1. EZETIMIBE [Suspect]
     Active Substance: EZETIMIBE
     Indication: Hypercholesterolaemia
     Dosage: 10 MILLIGRAM
     Route: 048
     Dates: start: 202010, end: 202102
  2. PRAVASTATIN [Suspect]
     Active Substance: PRAVASTATIN
     Indication: Hypercholesterolaemia
     Dosage: 20 MILLIGRAM
     Route: 048
     Dates: start: 202010, end: 202103

REACTIONS (3)
  - Malaise [Recovered/Resolved]
  - Abdominal distension [Recovered/Resolved]
  - Headache [Recovered/Resolved]
